FAERS Safety Report 16321110 (Version 2)
Quarter: 2019Q2

REPORT INFORMATION
  Report Type: Report from Study
  Country: KR (occurrence: KR)
  Receive Date: 20190516
  Receipt Date: 20190620
  Transmission Date: 20190711
  Serious: Yes (Death, Hospitalization)
  Sender: FDA-Public Use
  Company Number: KR-CELGENEUS-KOR-20190500922

PATIENT
  Age: 74 Year
  Sex: Male
  Weight: 68 kg

DRUGS (16)
  1. ABRAXANE [Suspect]
     Active Substance: PACLITAXEL
     Indication: ADENOCARCINOMA PANCREAS
     Route: 041
     Dates: start: 20190312, end: 20190430
  2. TOVIAZ [Concomitant]
     Active Substance: FESOTERODINE FUMARATE
     Indication: BENIGN PROSTATIC HYPERPLASIA
     Dosage: 4 MILLIGRAM
     Route: 048
     Dates: start: 20190313, end: 20190507
  3. CILOSTAN CR [Concomitant]
     Indication: ISCHAEMIA
     Dosage: 200 MILLIGRAM
     Route: 048
     Dates: start: 20190305, end: 20190507
  4. FOICHOL [Concomitant]
     Indication: PROPHYLAXIS
     Dosage: 600 MILLIGRAM
     Route: 048
     Dates: start: 20190308, end: 20190507
  5. CARNITIL [Concomitant]
     Indication: PROPHYLAXIS
     Dosage: 1000 MILLIGRAM
     Route: 048
     Dates: start: 20190221, end: 20190507
  6. IRCODON [Concomitant]
     Active Substance: OXYCODONE HYDROCHLORIDE
     Indication: PAIN MANAGEMENT
     Dosage: 5 MILLIGRAM
     Route: 048
     Dates: start: 20190225, end: 20190502
  7. CHLORPHENIRAMINE. [Concomitant]
     Active Substance: CHLORPHENIRAMINE
     Indication: PREMEDICATION
     Dosage: 4 MILLIGRAM
     Route: 041
     Dates: start: 20190312, end: 20190430
  8. TARGIN [Concomitant]
     Active Substance: NALOXONE HYDROCHLORIDE\OXYCODONE HYDROCHLORIDE
     Indication: PAIN MANAGEMENT
     Dosage: 1 TABLESPOON
     Route: 048
     Dates: start: 20190225, end: 20190508
  9. FLASINYL [Concomitant]
     Indication: PNEUMONIA
     Dosage: 1500 MILLIGRAM
     Route: 048
     Dates: start: 20190425, end: 20190507
  10. GEMCITABINE [Suspect]
     Active Substance: GEMCITABINE\GEMCITABINE HYDROCHLORIDE
     Indication: ADENOCARCINOMA PANCREAS
     Route: 041
     Dates: start: 20190312, end: 20190430
  11. ATACAND [Concomitant]
     Active Substance: CANDESARTAN CILEXETIL
     Indication: HYPERTENSION
     Dosage: 8 MILLIGRAM
     Route: 048
     Dates: start: 20190221, end: 20190424
  12. URSA [Concomitant]
     Active Substance: URSODIOL
     Indication: LIVER DISORDER
     Dosage: 300 MILLIGRAM
     Route: 048
     Dates: start: 20190222, end: 20190507
  13. NORPIN [Concomitant]
     Indication: BLOOD PRESSURE DECREASED
     Dosage: 32 MILLIGRAM
     Route: 041
     Dates: start: 20190424, end: 20190426
  14. HARNAL [Concomitant]
     Active Substance: TAMSULOSIN HYDROCHLORIDE
     Indication: BENIGN PROSTATIC HYPERPLASIA
     Dosage: .4 MILLIGRAM
     Route: 048
     Dates: start: 20190222, end: 20190424
  15. SMECTA [Concomitant]
     Active Substance: MONTMORILLONITE
     Indication: DIARRHOEA
     Dosage: 60 MILLIGRAM
     Route: 048
     Dates: start: 20190425, end: 20190427
  16. FLASINYL [Concomitant]
     Indication: PROPHYLAXIS

REACTIONS (1)
  - Pneumonitis [Fatal]

NARRATIVE: CASE EVENT DATE: 20190501
